FAERS Safety Report 24925649 (Version 1)
Quarter: 2025Q1

REPORT INFORMATION
  Report Type: Spontaneous
  Country: ES (occurrence: ES)
  Receive Date: 20250204
  Receipt Date: 20250204
  Transmission Date: 20250409
  Serious: Yes (Other)
  Sender: ABBVIE
  Company Number: None

PATIENT
  Age: 84 Year
  Sex: Male

DRUGS (4)
  1. AVIBACTAM SODIUM\CEFTAZIDIME [Suspect]
     Active Substance: AVIBACTAM SODIUM\CEFTAZIDIME
     Indication: Pyelonephritis acute
     Dosage: 1 DF, 2X/DAY
     Route: 042
     Dates: start: 20241025, end: 20241029
  2. AZTREONAM [Suspect]
     Active Substance: AZTREONAM
     Indication: Pyelonephritis acute
     Route: 042
     Dates: start: 20241025, end: 20241029
  3. CEFIDEROCOL SULFATE TOSYLATE [Suspect]
     Active Substance: CEFIDEROCOL SULFATE TOSYLATE
     Indication: Pyelonephritis acute
     Route: 042
     Dates: start: 20241029, end: 20241030
  4. TEICOPLANIN [Suspect]
     Active Substance: TEICOPLANIN
     Indication: Pyelonephritis acute
     Dosage: 400 MG, 2X/DAY
     Route: 042
     Dates: start: 20241029, end: 20241030

REACTIONS (1)
  - Encephalopathy [Recovered/Resolved]

NARRATIVE: CASE EVENT DATE: 20241030
